FAERS Safety Report 9490762 (Version 1)
Quarter: 2013Q3

REPORT INFORMATION
  Report Type: Spontaneous
  Country: US (occurrence: None)
  Receive Date: 20130828
  Receipt Date: 20130828
  Transmission Date: 20140515
  Serious: No
  Sender: FDA-Public Use
  Company Number: None

PATIENT
  Age: 11 Year
  Sex: Male
  Weight: 43.55 kg

DRUGS (2)
  1. CREON [Suspect]
     Indication: CYSTIC FIBROSIS
     Dosage: 24 PER DAY   4 W/MEALS 3 W/SNACKS  ORAL  3 MEALS + 4 SNACKS PER DAY
     Route: 048
     Dates: start: 20100812, end: 20100818
  2. CREON [Suspect]
     Indication: PANCREATIC ENZYMES DECREASED
     Dosage: 24 PER DAY   4 W/MEALS 3 W/SNACKS  ORAL  3 MEALS + 4 SNACKS PER DAY
     Route: 048
     Dates: start: 20100812, end: 20100818

REACTIONS (1)
  - Drug ineffective [None]
